FAERS Safety Report 15743288 (Version 1)
Quarter: 2018Q4

REPORT INFORMATION
  Report Type: Spontaneous
  Country: CZ (occurrence: CZ)
  Receive Date: 20181220
  Receipt Date: 20181220
  Transmission Date: 20190205
  Serious: Yes (Other)
  Sender: FDA-Public Use
  Company Number: CZ-TEVA-2018-CZ-988957

PATIENT
  Age: 4 Year
  Sex: Male

DRUGS (1)
  1. SUMAMED FORTE [Suspect]
     Active Substance: AZITHROMYCIN ANHYDROUS
     Route: 048
     Dates: start: 20181128, end: 20181128

REACTIONS (5)
  - Sudden visual loss [Recovered/Resolved]
  - Oral discomfort [Recovered/Resolved]
  - Erythema [Recovered/Resolved]
  - Conversion disorder [Recovered/Resolved]
  - Lacrimation increased [Recovered/Resolved]

NARRATIVE: CASE EVENT DATE: 20181128
